FAERS Safety Report 6291581-4 (Version None)
Quarter: 2009Q3

REPORT INFORMATION
  Report Type: 
  Country: None (occurrence: None)
  Receive Date: 20090730
  Receipt Date: 20090730
  Transmission Date: 20100115
  Serious: No
  Sender: FDA-Public Use
  Company Number: None

PATIENT
  Age: 26 Year
  Sex: Male
  Weight: 86.1834 kg

DRUGS (1)
  1. LEVAQUIN [Suspect]
     Indication: BACTERIAL INFECTION
     Dosage: 500MG, 1 DAY, PO
     Route: 048
     Dates: start: 20090216, end: 20090222

REACTIONS (17)
  - ACTIVITIES OF DAILY LIVING IMPAIRED [None]
  - ARTHRITIS [None]
  - ASTHENIA [None]
  - BURNING SENSATION [None]
  - DRUG TOXICITY [None]
  - DRY EYE [None]
  - HYPOAESTHESIA [None]
  - INSOMNIA [None]
  - JOINT CREPITATION [None]
  - MUSCULOSKELETAL STIFFNESS [None]
  - PAIN [None]
  - PERIPHERAL COLDNESS [None]
  - PHOTOSENSITIVITY REACTION [None]
  - POOR PERIPHERAL CIRCULATION [None]
  - REFLEXES ABNORMAL [None]
  - TENDONITIS [None]
  - URTICARIA [None]
